FAERS Safety Report 5499276-1 (Version None)
Quarter: 2007Q4

REPORT INFORMATION
  Report Type: 
  Country: None (occurrence: None)
  Receive Date: 20071026
  Receipt Date: 20071015
  Transmission Date: 20080405
  Serious: Yes (Death, Hospitalization)
  Sender: FDA-Public Use
  Company Number: FR-JNJFOC-20051000700

PATIENT
  Age: 85 Year
  Sex: Female

DRUGS (12)
  1. TOPALGIC [Suspect]
     Indication: ABDOMINAL PAIN
     Route: 048
  2. MYOLASTAN [Suspect]
     Indication: DRUG USE FOR UNKNOWN INDICATION
     Route: 048
  3. INEXIUM [Suspect]
     Indication: DYSPEPSIA
     Route: 048
  4. ACETAMINOPHEN W/ PROPOXYPHENE HCL [Suspect]
     Indication: ABDOMINAL PAIN
     Route: 048
  5. BIPROFENID (KETOPROFEN) [Suspect]
     Indication: ABDOMINAL PAIN
     Route: 048
  6. LASIX [Concomitant]
     Route: 065
  7. LOVENOX [Concomitant]
     Route: 058
  8. LEVOTHYROXINE SODIUM [Concomitant]
     Route: 065
  9. TENORMIN [Concomitant]
     Route: 065
  10. SEROPRAM [Concomitant]
     Route: 065
  11. ELISOR [Concomitant]
     Route: 048
  12. LOPRIL [Concomitant]
     Route: 048

REACTIONS (7)
  - COLITIS [None]
  - CONSTIPATION [None]
  - DIARRHOEA [None]
  - DIVERTICULAR PERFORATION [None]
  - GASTROINTESTINAL NECROSIS [None]
  - INFLAMMATION [None]
  - SEPTIC SHOCK [None]
